FAERS Safety Report 7588207-6 (Version None)
Quarter: 2011Q2

REPORT INFORMATION
  Report Type: 
  Country: None (occurrence: None)
  Receive Date: 20110627
  Receipt Date: 20110608
  Transmission Date: 20111010
  Serious: No
  Sender: FDA-Public Use
  Company Number: WAES 1106USA01314

PATIENT
  Sex: Male

DRUGS (1)
  1. INJ IVOMEC UNK [Suspect]
     Indication: DRUG ADMINISTRATION ERROR
     Dates: start: 20110608

REACTIONS (2)
  - ORAL DISCOMFORT [None]
  - ACCIDENTAL EXPOSURE [None]
